FAERS Safety Report 5652620-4 (Version None)
Quarter: 2008Q1

REPORT INFORMATION
  Report Type: 
  Country: None (occurrence: None)
  Receive Date: 20080305
  Receipt Date: 20080305
  Transmission Date: 20080703
  Serious: Yes (Other)
  Sender: FDA-Public Use
  Company Number: None

PATIENT
  Age: 82 Year
  Sex: Male

DRUGS (11)
  1. DEFINITY [Suspect]
     Indication: ECHOCARDIOGRAM
     Dosage: ONE TIME IV BOLUS
     Route: 040
     Dates: start: 20070920, end: 20070920
  2. LISINOPRIL [Concomitant]
  3. ALLOPURINOL [Concomitant]
  4. LEVOTHYROXINE SODIUM [Concomitant]
  5. ZETIA [Concomitant]
  6. HYDRALAZINE HCL [Concomitant]
  7. ISOSORBIDE DINITRATE [Concomitant]
  8. LOVASTATIN [Concomitant]
  9. ASPIRIN [Concomitant]
  10. METOPROLOL TARTRATE [Concomitant]
  11. MULVITAMIN [Concomitant]

REACTIONS (3)
  - CONTRAST MEDIA REACTION [None]
  - HEART RATE INCREASED [None]
  - PAIN [None]
